FAERS Safety Report 25361418 (Version 3)
Quarter: 2025Q3

REPORT INFORMATION
  Report Type: Spontaneous
  Country: US (occurrence: US)
  Receive Date: 20250527
  Receipt Date: 20250725
  Transmission Date: 20251020
  Serious: No
  Sender: AMGEN
  Company Number: US-AMGEN-USASP2025103553

PATIENT
  Age: 57 Year
  Sex: Female

DRUGS (20)
  1. OTEZLA [Suspect]
     Active Substance: APREMILAST
     Indication: Psoriasis
     Dosage: 30 MILLIGRAM, BID
     Route: 048
     Dates: start: 20250501, end: 2025
  2. OTEZLA [Suspect]
     Active Substance: APREMILAST
     Dosage: 30 MILLIGRAM, BID
     Route: 048
     Dates: start: 2025
  3. ANASTROZOLE [Concomitant]
     Active Substance: ANASTROZOLE
  4. ARMOUR THYROID [Concomitant]
     Active Substance: THYROID, PORCINE
  5. AZITHROMYCIN [Concomitant]
     Active Substance: AZITHROMYCIN
  6. DEPO-MEDROL [Concomitant]
     Active Substance: METHYLPREDNISOLONE ACETATE
  7. DICLOFENAC [Concomitant]
     Active Substance: DICLOFENAC
  8. DUPIXENT [Concomitant]
     Active Substance: DUPILUMAB
  9. OXYCODONE [Concomitant]
     Active Substance: OXYCODONE
  10. PFIZER-BIONTECH COVID-19 VACCINE [Concomitant]
     Active Substance: TOZINAMERAN
  11. TASIGNA [Concomitant]
     Active Substance: NILOTINIB
  12. TOBRAMYCIN [Concomitant]
     Active Substance: TOBRAMYCIN
  13. TRIAMTERENE AND HYDROCHLOROTHIAZIDE [Concomitant]
     Active Substance: HYDROCHLOROTHIAZIDE\TRIAMTERENE
  14. FLUCONAZOLE [Concomitant]
     Active Substance: FLUCONAZOLE
  15. FLUOXETINE [Concomitant]
     Active Substance: FLUOXETINE HYDROCHLORIDE
  16. NILOTINIB [Concomitant]
     Active Substance: NILOTINIB
  17. BACTRIM [Concomitant]
     Active Substance: SULFAMETHOXAZOLE\TRIMETHOPRIM
  18. BIOTIN [Concomitant]
     Active Substance: BIOTIN
  19. HYDROCHLOROTHIAZIDE\TRIAMTERENE [Concomitant]
     Active Substance: HYDROCHLOROTHIAZIDE\TRIAMTERENE
  20. VITAMIN D [Concomitant]
     Active Substance: VITAMIN D NOS

REACTIONS (3)
  - Sleep disorder due to a general medical condition [Unknown]
  - Diarrhoea [Unknown]
  - Infection [Unknown]

NARRATIVE: CASE EVENT DATE: 20250101
